FAERS Safety Report 25979463 (Version 1)
Quarter: 2025Q4

REPORT INFORMATION
  Report Type: Spontaneous
  Country: GB (occurrence: GB)
  Receive Date: 20251030
  Receipt Date: 20251030
  Transmission Date: 20260118
  Serious: Yes (Life-Threatening)
  Sender: MDD OPERATIONS
  Company Number: GB-MDD US Operations-MDD202510-004423

PATIENT
  Age: 55 Year
  Sex: Male

DRUGS (2)
  1. APOMORPHINE HYDROCHLORIDE [Suspect]
     Active Substance: APOMORPHINE HYDROCHLORIDE
     Indication: Product used for unknown indication
     Dosage: NOT PROVIDED
  2. MORPHINE SULFATE [Suspect]
     Active Substance: MORPHINE SULFATE
     Indication: Hernia
     Dosage: NOT PROVIDED
     Dates: end: 2022

REACTIONS (1)
  - Hepatic pain [Unknown]
